FAERS Safety Report 10210965 (Version 1)
Quarter: 2014Q2

REPORT INFORMATION
  Report Type: Spontaneous
  Country: IT (occurrence: IT)
  Receive Date: 20140602
  Receipt Date: 20140602
  Transmission Date: 20141212
  Serious: Yes (Other)
  Sender: FDA-Public Use
  Company Number: IT-WATSON-2014-11253

PATIENT
  Age: 55 Year
  Sex: Male

DRUGS (2)
  1. LORAZEPAM [Suspect]
     Indication: DRUG ABUSE
     Dosage: 12 MG, TOTAL
     Route: 048
     Dates: start: 20140118, end: 20140118
  2. KEPPRA [Concomitant]
     Indication: PRODUCT USED FOR UNKNOWN INDICATION
     Dosage: 2 POSOLOGICAL UNITS UNK FREQUNCY
     Route: 048

REACTIONS (3)
  - Toxicity to various agents [Recovering/Resolving]
  - Malaise [Recovering/Resolving]
  - Drug abuse [Recovering/Resolving]
